FAERS Safety Report 23651404 (Version 1)
Quarter: 2024Q1

REPORT INFORMATION
  Report Type: Spontaneous
  Country: IT (occurrence: IT)
  Receive Date: 20240320
  Receipt Date: 20240320
  Transmission Date: 20240410
  Serious: Yes (Other)
  Sender: FDA-Public Use
  Company Number: None

PATIENT
  Age: 66 Year
  Sex: Male

DRUGS (2)
  1. FLUOROURACIL [Suspect]
     Active Substance: FLUOROURACIL
     Indication: Product used for unknown indication
     Dosage: SC 28/02/2025/ TEVA
     Route: 042
     Dates: start: 20240108, end: 20240122
  2. OXALIPLATIN [Suspect]
     Active Substance: OXALIPLATIN
     Indication: Product used for unknown indication
     Dosage: FROM THE 7TH SC CYCLE 08/31/2024
     Route: 042
     Dates: start: 20240108, end: 20240122

REACTIONS (2)
  - Neurotoxicity [Recovered/Resolved]
  - Dysgeusia [Recovering/Resolving]

NARRATIVE: CASE EVENT DATE: 20240108
